FAERS Safety Report 4896358-X (Version None)
Quarter: 2006Q1

REPORT INFORMATION
  Report Type: 
  Country: None (occurrence: None)
  Receive Date: 20060126
  Receipt Date: 20060113
  Transmission Date: 20060701
  Serious: Yes (Hospitalization)
  Sender: FDA-Public Use
  Company Number: 2006010603

PATIENT
  Age: 47 Year
  Sex: Male
  Weight: 101.4 kg

DRUGS (1)
  1. PREDNISOLONE [Suspect]
     Indication: ILL-DEFINED DISORDER

REACTIONS (7)
  - BRONCHOPULMONARY ASPERGILLOSIS [None]
  - CHOLESTASIS [None]
  - HAEMOCHROMATOSIS [None]
  - HAEMOPTYSIS [None]
  - HEPATIC STEATOSIS [None]
  - PERONEAL NERVE PALSY [None]
  - PLEURITIC PAIN [None]
